FAERS Safety Report 7071019-X (Version None)
Quarter: 2010Q4

REPORT INFORMATION
  Report Type: 
  Country: None (occurrence: None)
  Receive Date: 20101021
  Receipt Date: 20101008
  Transmission Date: 20110411
  Serious: Yes (Hospitalization)
  Sender: FDA-Public Use
  Company Number: 2010SP028265

PATIENT
  Age: 81 Year
  Sex: Male

DRUGS (12)
  1. TICE BCG [Suspect]
     Indication: BLADDER CANCER
     Dosage: ; QW; INVES;; QW; INVES;; QW; INVES
     Route: 043
     Dates: start: 20100203
  2. TICE BCG [Suspect]
     Indication: BLADDER CANCER
     Dosage: ; QW; INVES;; QW; INVES;; QW; INVES
     Route: 043
     Dates: start: 20100209
  3. TICE BCG [Suspect]
     Indication: BLADDER CANCER
     Dosage: ; QW; INVES;; QW; INVES;; QW; INVES
     Route: 043
     Dates: start: 20100217
  4. LEVAQUIN [Suspect]
     Indication: HAEMATURIA
  5. LIPITOR [Concomitant]
  6. PROSCAR [Concomitant]
  7. AMBIEN [Concomitant]
  8. FOLIC ACID [Concomitant]
  9. ASCORBIC ACID [Concomitant]
  10. FISH OIL [Concomitant]
  11. SEPTRA DS [Concomitant]
  12. CARDURA [Concomitant]

REACTIONS (18)
  - ATELECTASIS [None]
  - ATRIAL FIBRILLATION [None]
  - BLISTER [None]
  - BONE MARROW FAILURE [None]
  - CARDIOMEGALY [None]
  - CULTURE URINE POSITIVE [None]
  - DIVERTICULUM [None]
  - DRUG HYPERSENSITIVITY [None]
  - EMPHYSEMA [None]
  - HAEMATURIA [None]
  - HEPATOSPLENOMEGALY [None]
  - LIVER FUNCTION TEST ABNORMAL [None]
  - MYCOBACTERIUM AVIUM COMPLEX INFECTION [None]
  - PLEURAL EFFUSION [None]
  - PULMONARY CONGESTION [None]
  - RAOULTELLA TEST POSITIVE [None]
  - SEPSIS [None]
  - STAPHYLOCOCCUS TEST POSITIVE [None]
